FAERS Safety Report 7969257-4 (Version None)
Quarter: 2011Q4

REPORT INFORMATION
  Report Type: 
  Country: None (occurrence: None)
  Receive Date: 20111209
  Receipt Date: 20111207
  Transmission Date: 20120403
  Serious: Yes (Death, Hospitalization)
  Sender: FDA-Public Use
  Company Number: PL-BIOMARINP-000342

PATIENT
  Sex: Female
  Weight: 40 kg

DRUGS (13)
  1. NAGLAZYME [Suspect]
     Indication: MUCOPOLYSACCHARIDOSIS VI
     Dosage: FREQUENCY UNKNOWN
     Route: 041
     Dates: start: 20100330, end: 20100412
  2. NAGLAZYME [Suspect]
     Dosage: DOSE AND FREQUENCY NOT REPORTED
     Route: 041
     Dates: start: 20100131
  3. FUROSEMIDUM [Concomitant]
  4. MUCOLYTICS [Concomitant]
  5. VIVACOR [Concomitant]
  6. DOPAMINE HCL [Concomitant]
  7. ANTIFUNGAL [Concomitant]
  8. NAGLAZYME [Suspect]
     Route: 041
  9. HYDROCORTISONUM [Concomitant]
     Indication: PREMEDICATION
     Route: 042
  10. ACETAMINOPHEN [Concomitant]
     Indication: PREMEDICATION
     Dosage: 1 FLASK
     Route: 042
  11. CLEMASTINUM [Concomitant]
     Indication: PREMEDICATION
     Route: 042
  12. ANTIBIOTICS [Concomitant]
  13. ALBUMIN (HUMAN) [Concomitant]

REACTIONS (10)
  - RENAL DISORDER [None]
  - PULMONARY OEDEMA [None]
  - VENOUS INSUFFICIENCY [None]
  - CONDITION AGGRAVATED [None]
  - CONGESTIVE CARDIOMYOPATHY [None]
  - HYPERTONIA [None]
  - MULTI-ORGAN FAILURE [None]
  - CARDIAC FAILURE CHRONIC [None]
  - ASCITES [None]
  - LIVER INJURY [None]
